FAERS Safety Report 17859031 (Version 1)
Quarter: 2020Q2

REPORT INFORMATION
  Report Type: Spontaneous
  Country: SK (occurrence: SK)
  Receive Date: 20200604
  Receipt Date: 20200604
  Transmission Date: 20200714
  Serious: Yes (Hospitalization)
  Sender: FDA-Public Use
  Company Number: SK-HIKMA PHARMACEUTICALS USA INC.-SK-H14001-20-51467

PATIENT
  Age: 57 Year
  Sex: Male
  Weight: 111 kg

DRUGS (1)
  1. CIPROFLOXACIN. [Suspect]
     Active Substance: CIPROFLOXACIN
     Indication: URINARY TRACT INFECTION
     Route: 042

REACTIONS (3)
  - Diarrhoea [Recovered/Resolved]
  - Dermatitis allergic [Recovered/Resolved]
  - Leukopenia [Recovered/Resolved]

NARRATIVE: CASE EVENT DATE: 20200117
